FAERS Safety Report 7714885-4 (Version None)
Quarter: 2011Q3

REPORT INFORMATION
  Report Type: 
  Country: None (occurrence: None)
  Receive Date: 20110822
  Receipt Date: 20110804
  Transmission Date: 20111222
  Serious: Yes (Death, Other)
  Sender: FDA-Public Use
  Company Number: 2011MA011466

PATIENT
  Age: 22 Year

DRUGS (3)
  1. METHADONE HCL [Suspect]
     Indication: OVERDOSE
     Dosage: 1.2 MG/L;X1
  2. ALPRAZOLAM [Suspect]
     Indication: OVERDOSE
     Dosage: 37 TABLETS;X1
  3. QUETIAPINE FUMARATE [Suspect]
     Indication: OVERDOSE

REACTIONS (8)
  - RESPIRATORY DEPRESSION [None]
  - SOMNOLENCE [None]
  - PLEURAL DISORDER [None]
  - ASPIRATION [None]
  - PULMONARY OEDEMA [None]
  - INCORRECT DOSE ADMINISTERED [None]
  - TOXICITY TO VARIOUS AGENTS [None]
  - OVERDOSE [None]
